FAERS Safety Report 25845229 (Version 1)
Quarter: 2025Q3

REPORT INFORMATION
  Report Type: Spontaneous
  Country: EU (occurrence: EU)
  Receive Date: 20250925
  Receipt Date: 20250925
  Transmission Date: 20251021
  Serious: Yes (Other)
  Sender: AMGEN
  Company Number: None

PATIENT
  Age: 76 Year
  Sex: Female

DRUGS (1)
  1. PROLIA [Suspect]
     Active Substance: DENOSUMAB
     Indication: Osteoporosis
     Route: 065
     Dates: start: 20240501

REACTIONS (3)
  - Osteonecrosis of jaw [Recovering/Resolving]
  - Oral cavity fistula [Unknown]
  - Oral infection [Unknown]

NARRATIVE: CASE EVENT DATE: 20250827
